FAERS Safety Report 7710876-8 (Version None)
Quarter: 2011Q3

REPORT INFORMATION
  Report Type: 
  Country: None (occurrence: None)
  Receive Date: 20110825
  Receipt Date: 20110815
  Transmission Date: 20111222
  Serious: Yes (Hospitalization)
  Sender: FDA-Public Use
  Company Number: NL-GENENTECH-322611

PATIENT
  Sex: Female
  Weight: 98 kg

DRUGS (7)
  1. DOXORUBICIN HCL [Suspect]
     Indication: DIFFUSE LARGE B-CELL LYMPHOMA
     Dosage: 106 MG, Q2W
     Route: 042
     Dates: start: 20110728
  2. NEUPOGEN [Suspect]
     Indication: DIFFUSE LARGE B-CELL LYMPHOMA
     Dosage: 6 MG, Q2W
     Route: 058
     Dates: start: 20110729
  3. PREDNISONE [Suspect]
     Indication: DIFFUSE LARGE B-CELL LYMPHOMA
     Dosage: 100 MG, QDX5D/14DC
     Route: 048
     Dates: start: 20110723
  4. CYCLOPHOSPHAMIDE [Suspect]
     Indication: DIFFUSE LARGE B-CELL LYMPHOMA
     Dosage: 1620 MG, Q2W
     Route: 042
     Dates: start: 20110728
  5. VINCRISTINE [Suspect]
     Indication: DIFFUSE LARGE B-CELL LYMPHOMA
     Dosage: 2 MG, Q2W
     Route: 042
     Dates: start: 20110728
  6. ALLOPURINOL [Suspect]
     Indication: PROPHYLAXIS
     Dosage: 300 MG, UNK
     Route: 048
     Dates: start: 20110722
  7. RITUXIMAB [Suspect]
     Indication: DIFFUSE LARGE B-CELL LYMPHOMA
     Dosage: 750 MG, Q2W
     Route: 042
     Dates: start: 20110728

REACTIONS (1)
  - DELIRIUM [None]
